FAERS Safety Report 20755755 (Version 3)
Quarter: 2022Q2

REPORT INFORMATION
  Report Type: Spontaneous
  Country: US (occurrence: US)
  Receive Date: 20220427
  Receipt Date: 20220505
  Transmission Date: 20220720
  Serious: Yes (Other)
  Sender: FDA-Public Use
  Company Number: US-PFIZER INC-202200617502

PATIENT
  Age: 57 Year
  Sex: Male
  Weight: 117.91 kg

DRUGS (7)
  1. DILANTIN [Suspect]
     Active Substance: PHENYTOIN
     Indication: Seizure
     Dosage: 100 MG
  2. DILANTIN [Suspect]
     Active Substance: PHENYTOIN
     Dosage: 300 MG- A.M, 200 MG- P.M
     Dates: start: 198306
  3. DILANTIN [Suspect]
     Active Substance: PHENYTOIN
     Dosage: 30 MG - P.M
     Dates: start: 20220412
  4. METFORMIN [Concomitant]
     Active Substance: METFORMIN HYDROCHLORIDE
     Dosage: UNK
     Dates: start: 201903
  5. CRESTOR [Concomitant]
     Active Substance: ROSUVASTATIN CALCIUM
     Dosage: UNK
     Dates: start: 201003
  6. SINGULAIR [Concomitant]
     Active Substance: MONTELUKAST SODIUM
     Dosage: UNK
     Dates: start: 202010
  7. LEXAPRO [Concomitant]
     Active Substance: ESCITALOPRAM OXALATE
     Dosage: UNK
     Dates: start: 201809

REACTIONS (3)
  - Product complaint [Unknown]
  - Seizure [Recovered/Resolved]
  - Anticonvulsant drug level decreased [Not Recovered/Not Resolved]

NARRATIVE: CASE EVENT DATE: 20220410
